FAERS Safety Report 8383508-6 (Version None)
Quarter: 2012Q2

REPORT INFORMATION
  Report Type: 
  Country: None (occurrence: None)
  Receive Date: 20120524
  Receipt Date: 20120510
  Transmission Date: 20120825
  Serious: Yes (Hospitalization)
  Sender: FDA-Public Use
  Company Number: US-FRI-1000030703

PATIENT
  Sex: Female

DRUGS (8)
  1. LUAF41156 [Suspect]
     Indication: MAJOR DEPRESSION
     Route: 048
     Dates: start: 20110713
  2. HUMALOG [Concomitant]
     Dates: start: 20111013
  3. CALCIUM CARBONATE [Concomitant]
     Dates: start: 20060101
  4. LIPITOR [Concomitant]
     Dates: start: 20100901
  5. LANTUS [Concomitant]
     Dates: start: 20111013
  6. ESCITALOPRAM [Suspect]
     Indication: MAJOR DEPRESSION
     Dosage: 20 MG
     Route: 048
     Dates: start: 20110407
  7. ADVIL [Concomitant]
     Dates: start: 19900101
  8. LISINOPRIL [Concomitant]
     Dates: start: 20111013

REACTIONS (2)
  - DIABETIC KETOACIDOSIS [None]
  - PANCREATITIS [None]
